FAERS Safety Report 15763877 (Version 2)
Quarter: 2025Q3

REPORT INFORMATION
  Report Type: Spontaneous
  Country: US (occurrence: US)
  Receive Date: 20181227
  Receipt Date: 20250718
  Transmission Date: 20251021
  Serious: Yes (Life-Threatening, Hospitalization, Other)
  Sender: AUROBINDO
  Company Number: US-AUROBINDO-AUR-APL-2018-060168

PATIENT
  Age: 67 Year
  Sex: Female

DRUGS (4)
  1. PREDNISONE [Suspect]
     Active Substance: PREDNISONE
     Indication: Graft versus host disease in gastrointestinal tract
     Route: 065
  2. TACROLIMUS [Suspect]
     Active Substance: TACROLIMUS
     Indication: Graft versus host disease in gastrointestinal tract
     Route: 065
  3. ECULIZUMAB [Concomitant]
     Active Substance: ECULIZUMAB
     Indication: Product used for unknown indication
     Route: 065
  4. AZITHROMYCIN [Concomitant]
     Active Substance: AZITHROMYCIN
     Indication: Prophylaxis
     Route: 042

REACTIONS (8)
  - Renal failure [Recovered/Resolved]
  - Enterocolitis haemorrhagic [Recovered/Resolved]
  - Encephalopathy [Recovering/Resolving]
  - Hypervolaemia [Recovering/Resolving]
  - Escherichia infection [Recovered/Resolved]
  - Haemolytic uraemic syndrome [Recovered/Resolved]
  - Hyperkalaemia [Recovering/Resolving]
  - Thrombotic microangiopathy [Recovered/Resolved]
